FAERS Safety Report 8103894-1 (Version None)
Quarter: 2012Q1

REPORT INFORMATION
  Report Type: 
  Country: None (occurrence: None)
  Receive Date: 20120201
  Receipt Date: 20120126
  Transmission Date: 20120608
  Serious: Yes (Other)
  Sender: FDA-Public Use
  Company Number: US-PFIZER INC-2012022292

PATIENT
  Sex: Male
  Weight: 109 kg

DRUGS (1)
  1. CHANTIX [Suspect]
     Indication: TOBACCO USER
     Dosage: 0.5 MG, 1X/DAY
     Route: 048
     Dates: start: 20080101, end: 20080101

REACTIONS (9)
  - NERVOUS SYSTEM DISORDER [None]
  - PAROSMIA [None]
  - MALAISE [None]
  - ALCOHOL INTOLERANCE [None]
  - ABNORMAL DREAMS [None]
  - NAUSEA [None]
  - SLEEP DISORDER [None]
  - DEPRESSION [None]
  - ANXIETY [None]
